FAERS Safety Report 9613368 (Version 1)
Quarter: 2013Q4

REPORT INFORMATION
  Report Type: Spontaneous
  Country: GB (occurrence: None)
  Receive Date: 20131008
  Receipt Date: 20131008
  Transmission Date: 20140711
  Serious: Yes (Death, Hospitalization)
  Sender: FDA-Public Use
  Company Number: KAD201309-001284

PATIENT
  Age: 43 Year
  Sex: Male
  Weight: 68 kg

DRUGS (8)
  1. RIBAVIRIN [Suspect]
     Indication: HEPATITIS C
     Route: 048
     Dates: start: 20120418, end: 20120421
  2. PEGASYS (PEGINTERFERON ALFA-2A) [Suspect]
     Indication: HEPATITIS C
     Route: 058
     Dates: start: 20120418, end: 20120421
  3. TELAPREVIR [Suspect]
     Indication: HEPATITIS C
     Route: 048
     Dates: start: 20120418, end: 20120421
  4. BECOTIDE (BECLOMETHASONE DIPROPIONATE) [Concomitant]
  5. DIAZEPAM (DIAZEPAM) [Concomitant]
  6. DIHYDROCODEINE (DIHYDROCODEINE) [Concomitant]
  7. OMEPRAZOLE (OMEPAZOLE) [Concomitant]
  8. SALBUTAMOL (SAMBUTAMOL) [Concomitant]

REACTIONS (9)
  - Bronchopneumonia [None]
  - Brain injury [None]
  - Respiratory arrest [None]
  - Cardiac arrest [None]
  - Atrial fibrillation [None]
  - Electrocardiogram QT prolonged [None]
  - Electrocardiogram QT prolonged [None]
  - Aspiration [None]
  - Procedural complication [None]
